FAERS Safety Report 23510431 (Version 2)
Quarter: 2024Q1

REPORT INFORMATION
  Report Type: Report from Study
  Country: US (occurrence: US)
  Receive Date: 20240211
  Receipt Date: 20240213
  Transmission Date: 20240410
  Serious: Yes (Other)
  Sender: FDA-Public Use
  Company Number: US-ABBVIE-5628522

PATIENT
  Age: 59 Year
  Sex: Female
  Weight: 58 kg

DRUGS (4)
  1. RINVOQ [Suspect]
     Active Substance: UPADACITINIB
     Indication: Rheumatoid arthritis
     Dosage: 1 TABLET, FORM STRENGTH: 15 MILLIGRAM, AT NIGHT
     Route: 048
     Dates: start: 20230715
  2. KEPPRA [Concomitant]
     Active Substance: LEVETIRACETAM
     Indication: Seizure
     Dosage: 1 TABLET, FORM STRENGTH: 1000 MILLIGRAM
     Route: 048
     Dates: start: 2002, end: 202312
  3. KEPPRA [Concomitant]
     Active Substance: LEVETIRACETAM
     Indication: Seizure
     Dosage: 1.5 TABLET, FORM STRENGTH: 1000 MILLIGRAM
     Route: 048
     Dates: start: 202401
  4. GABAPENTIN [Concomitant]
     Active Substance: GABAPENTIN
     Indication: Neuralgia
     Route: 065

REACTIONS (2)
  - Simple partial seizures [Recovering/Resolving]
  - Therapeutic response unexpected [Unknown]

NARRATIVE: CASE EVENT DATE: 20231201
